FAERS Safety Report 5290772-9 (Version None)
Quarter: 2007Q2

REPORT INFORMATION
  Report Type: 
  Country: None (occurrence: None)
  Receive Date: 20070409
  Receipt Date: 20070328
  Transmission Date: 20071010
  Serious: Yes (Hospitalization)
  Sender: FDA-Public Use
  Company Number: FR-PFIZER INC-2007025921

PATIENT
  Age: 83 Year
  Sex: Male

DRUGS (4)
  1. TAHOR [Suspect]
     Indication: HYPERCHOLESTEROLAEMIA
     Route: 048
  2. SUTENT [Suspect]
     Indication: RENAL NEOPLASM
     Route: 048
     Dates: start: 20060824, end: 20060828
  3. METRONIDAZOLE [Suspect]
     Indication: RENAL NEOPLASM
     Route: 048
  4. DRUG, UNSPECIFIED [Concomitant]

REACTIONS (2)
  - CONVULSION [None]
  - ENCEPHALOPATHY [None]
